FAERS Safety Report 6642031-7 (Version None)
Quarter: 2010Q1

REPORT INFORMATION
  Report Type: 
  Country: None (occurrence: None)
  Receive Date: 20100316
  Receipt Date: 20100301
  Transmission Date: 20100710
  Serious: Yes (Death, Hospitalization, Other)
  Sender: FDA-Public Use
  Company Number: KV201000011

PATIENT
  Age: 57 Year
  Sex: Female
  Weight: 104.8 kg

DRUGS (18)
  1. MORPHINE SULFATE ER (MORPHINE SULFATE) SLOW RELEASE TABLET, 30MG [Suspect]
     Indication: DRUG USE FOR UNKNOWN INDICATION
     Dosage: 30 MG, Q8H, ORAL
     Route: 048
     Dates: start: 20080515
  2. METFORMIN HCL [Concomitant]
  3. PRAVASTATIN [Concomitant]
  4. FENOFIBRATE [Concomitant]
  5. ATENOLOL [Concomitant]
  6. RANITIDINE [Concomitant]
  7. FOSINOPRIL SODIUM [Concomitant]
  8. NOVOLOG [Concomitant]
  9. LANTUS [Concomitant]
  10. ACTOS /01460201/ (PIOGLITAZONE) [Concomitant]
  11. WARFARIN SODIUM [Concomitant]
  12. FOLIC ACID [Concomitant]
  13. OMEPRAZOLE [Concomitant]
  14. ZOLPIDEM [Concomitant]
  15. GABAPENTIN [Concomitant]
  16. HYDROCODONE W/APAP (HYDROCODONE, PARACETAMOL) [Concomitant]
  17. OXYCODONE HCL ER (OXYCODONE HYDROCHLORIDE) [Concomitant]
  18. MORPHINE SULFATE ER (MORPHINE SULFATE ER) [Concomitant]

REACTIONS (45)
  - ACUTE RESPIRATORY FAILURE [None]
  - ALTERED STATE OF CONSCIOUSNESS [None]
  - ANXIETY [None]
  - AREFLEXIA [None]
  - ASTHENIA [None]
  - ATELECTASIS [None]
  - BACK PAIN [None]
  - CARDIOMEGALY [None]
  - CARDIOPULMONARY FAILURE [None]
  - CEREBROVASCULAR DISORDER [None]
  - CONVULSION [None]
  - DEVICE RELATED INFECTION [None]
  - EXTENSOR PLANTAR RESPONSE [None]
  - FAECAL INCONTINENCE [None]
  - FATIGUE [None]
  - HYPOAESTHESIA [None]
  - HYPOXIC ENCEPHALOPATHY [None]
  - ILEUS [None]
  - INCORRECT DOSE ADMINISTERED [None]
  - INTERNATIONAL NORMALISED RATIO INCREASED [None]
  - LOSS OF CONSCIOUSNESS [None]
  - LUNG CANCER METASTATIC [None]
  - LUNG INFILTRATION [None]
  - MALIGNANT NEOPLASM PROGRESSION [None]
  - METASTASES TO ADRENALS [None]
  - METASTASES TO BONE [None]
  - METASTASES TO CHEST WALL [None]
  - MUSCLE TWITCHING [None]
  - NAUSEA [None]
  - ORTHOPNOEA [None]
  - PNEUMONIA [None]
  - PNEUMONIA ASPIRATION [None]
  - PNEUMOTHORAX [None]
  - POSTURING [None]
  - PULMONARY CONGESTION [None]
  - PULMONARY OEDEMA [None]
  - PYREXIA [None]
  - RESPIRATORY DISTRESS [None]
  - RHONCHI [None]
  - SEPSIS [None]
  - STATUS EPILEPTICUS [None]
  - TREATMENT FAILURE [None]
  - UNRESPONSIVE TO STIMULI [None]
  - URINARY INCONTINENCE [None]
  - VOMITING [None]
